FAERS Safety Report 10802394 (Version 2)
Quarter: 2015Q2

REPORT INFORMATION
  Report Type: Spontaneous
  Country: BR (occurrence: BR)
  Receive Date: 20150217
  Receipt Date: 20150406
  Transmission Date: 20150821
  Serious: Yes (Hospitalization, Other)
  Sender: FDA-Public Use
  Company Number: BR-PFIZER INC-2015058064

PATIENT
  Age: 82 Year
  Sex: Male
  Weight: 75 kg

DRUGS (4)
  1. DETRUSITOL LA [Suspect]
     Active Substance: TOLTERODINE TARTRATE
     Indication: URINARY TRACT INFECTION
  2. GLUCOVANCE [Concomitant]
     Active Substance: GLYBURIDE\METFORMIN HYDROCHLORIDE
     Indication: DIABETES MELLITUS
     Dosage: 500/5 (NO UNITS) 1X/DAY
     Dates: start: 2010
  3. VALTRIAN HCT [Concomitant]
     Indication: HYPERTENSION
     Dosage: 1X/DAY
     Dates: start: 2005
  4. DETRUSITOL LA [Suspect]
     Active Substance: TOLTERODINE TARTRATE
     Indication: URINARY INCONTINENCE
     Dosage: 4 MG, 1X/DAY
     Route: 048
     Dates: start: 201412

REACTIONS (3)
  - Product use issue [Unknown]
  - Drug ineffective [Not Recovered/Not Resolved]
  - Scrotal infection [Unknown]

NARRATIVE: CASE EVENT DATE: 201412
